FAERS Safety Report 17765044 (Version 2)
Quarter: 2020Q3

REPORT INFORMATION
  Report Type: Spontaneous
  Country: US (occurrence: US)
  Receive Date: 20200511
  Receipt Date: 20200812
  Transmission Date: 20201102
  Serious: No
  Sender: FDA-Public Use
  Company Number: US-GLENMARK PHARMACEUTICALS-2020GMK046215

PATIENT

DRUGS (1)
  1. ACYCLOVIR OINTMENT USP [Suspect]
     Active Substance: ACYCLOVIR
     Indication: ORAL HERPES
     Dosage: UNK, 6 TIMES A DAY EVERY 3 HOURS FOR 7 DAYS)
     Route: 061
     Dates: start: 20200209

REACTIONS (9)
  - Condition aggravated [Recovered/Resolved]
  - Product physical consistency issue [Unknown]
  - Product administration error [Unknown]
  - Product substitution issue [Unknown]
  - Product packaging issue [Unknown]
  - Drug ineffective [Unknown]
  - Suspected counterfeit product [Unknown]
  - Oral herpes [Recovered/Resolved]
  - Product use issue [Unknown]

NARRATIVE: CASE EVENT DATE: 20200209
